FAERS Safety Report 22530389 (Version 1)
Quarter: 2023Q2

REPORT INFORMATION
  Report Type: Spontaneous
  Country: US (occurrence: None)
  Receive Date: 20230606
  Receipt Date: 20230606
  Transmission Date: 20230722
  Serious: Yes (Other)
  Sender: FDA-Public Use
  Company Number: None

PATIENT
  Age: 67 Year
  Sex: Female
  Weight: 86 kg

DRUGS (19)
  1. ACTEMRA ACTPEN [Suspect]
     Active Substance: TOCILIZUMAB
     Indication: Giant cell arteritis
     Dosage: 162 MG WEEKLY SUBCUTANEOUS
     Route: 058
     Dates: start: 20221011, end: 20230425
  2. ALIROCUMAB [Concomitant]
     Active Substance: ALIROCUMAB
  3. ALPHA LIPOIC ACID [Concomitant]
     Active Substance: .ALPHA.-LIPOIC ACID
  4. ASCORBIC ACID [Concomitant]
     Active Substance: ASCORBIC ACID
  5. Basqsimi [Concomitant]
  6. CALCIUM CITRATE [Concomitant]
     Active Substance: CALCIUM CITRATE
  7. CEPHALEXIN [Concomitant]
     Active Substance: CEPHALEXIN
  8. CHROMIC CHLORIDE [Concomitant]
     Active Substance: CHROMIC CHLORIDE
  9. ERGOCALCIFEROL [Concomitant]
     Active Substance: ERGOCALCIFEROL
  10. EVOLOCUMAB [Concomitant]
     Active Substance: EVOLOCUMAB
  11. EZETIMIBE [Concomitant]
     Active Substance: EZETIMIBE
  12. FISH OIL [Concomitant]
     Active Substance: FISH OIL
  13. LISINOPRIL [Concomitant]
     Active Substance: LISINOPRIL
  14. NOVOLOG [Concomitant]
     Active Substance: INSULIN ASPART
  15. PANTOPRAZOLE [Concomitant]
     Active Substance: PANTOPRAZOLE
  16. PREDNISONE [Concomitant]
     Active Substance: PREDNISONE
  17. SEMAGLUTIDE [Concomitant]
     Active Substance: SEMAGLUTIDE
  18. VITAMIN E [Concomitant]
     Active Substance: .ALPHA.-TOCOPHEROL
  19. DOXYCYCLINE [Concomitant]
     Active Substance: DOXYCYCLINE

REACTIONS (4)
  - Injection site mass [None]
  - Injection site erythema [None]
  - Injection site swelling [None]
  - Dermatitis bullous [None]

NARRATIVE: CASE EVENT DATE: 20230424
